FAERS Safety Report 4930458-0 (Version None)
Quarter: 2006Q1

REPORT INFORMATION
  Report Type: 
  Country: None (occurrence: None)
  Receive Date: 20060118
  Receipt Date: 20050608
  Transmission Date: 20060701
  Serious: No
  Sender: FDA-Public Use
  Company Number: 2005001083

PATIENT
  Age: 73 Year
  Sex: Male

DRUGS (12)
  1. TARCEVA [Suspect]
     Indication: NON-SMALL CELL LUNG CANCER
     Dosage: SEE IMAGE
     Route: 048
     Dates: start: 20050510, end: 20050524
  2. TARCEVA [Suspect]
     Indication: NON-SMALL CELL LUNG CANCER
     Dosage: SEE IMAGE
     Route: 048
     Dates: start: 20050527, end: 20050607
  3. TARCEVA [Suspect]
     Indication: NON-SMALL CELL LUNG CANCER
     Dosage: SEE IMAGE
     Route: 048
     Dates: start: 20050619, end: 20050714
  4. TARCEVA [Suspect]
     Indication: NON-SMALL CELL LUNG CANCER
     Dosage: SEE IMAGE
     Route: 048
     Dates: start: 20050723, end: 20050806
  5. TARCEVA [Suspect]
     Indication: NON-SMALL CELL LUNG CANCER
     Dosage: SEE IMAGE
     Route: 048
     Dates: start: 20050908, end: 20050912
  6. RADIATION [Concomitant]
  7. CHEMOTHERAPY [Concomitant]
  8. INSULIN (INSULIN) [Concomitant]
  9. ZOMETA [Concomitant]
  10. AVANDIA [Concomitant]
  11. COUMADIN [Concomitant]
  12. VITAMINS (VITAMINS) [Concomitant]

REACTIONS (13)
  - ACNE [None]
  - BLOOD CREATININE INCREASED [None]
  - BLOOD URINE PRESENT [None]
  - DIARRHOEA [None]
  - EYE IRRITATION [None]
  - INCREASED UPPER AIRWAY SECRETION [None]
  - MOUTH ULCERATION [None]
  - PLATELET COUNT [None]
  - PLATELET COUNT DECREASED [None]
  - PRODUCTIVE COUGH [None]
  - STOMATITIS [None]
  - URINE ABNORMALITY [None]
  - VISUAL ACUITY REDUCED [None]
